FAERS Safety Report 10637450 (Version 1)
Quarter: 2014Q4

REPORT INFORMATION
  Report Type: Spontaneous
  Country: TR (occurrence: None)
  Receive Date: 20141205
  Receipt Date: 20141205
  Transmission Date: 20150529
  Serious: Yes (Death)
  Sender: FDA-Public Use
  Company Number: None

PATIENT
  Age: 88 Year
  Sex: Male
  Weight: 60 kg

DRUGS (1)
  1. REXAPIN [Suspect]
     Active Substance: OLANZAPINE
     Indication: AGITATION

REACTIONS (1)
  - Pneumonia [None]

NARRATIVE: CASE EVENT DATE: 20131225
